FAERS Safety Report 5333685-6 (Version None)
Quarter: 2007Q2

REPORT INFORMATION
  Report Type: 
  Country: None (occurrence: None)
  Receive Date: 20070524
  Receipt Date: 20070523
  Transmission Date: 20071010
  Serious: Yes (Hospitalization)
  Sender: FDA-Public Use
  Company Number: A0652717A

PATIENT
  Age: 70 Year
  Sex: Female

DRUGS (13)
  1. AVANDIA [Suspect]
     Dosage: 4MG TWICE PER DAY
     Route: 048
     Dates: start: 19990101
  2. GLUCOPHAGE [Concomitant]
  3. PRAVACHOL [Concomitant]
  4. COREG [Concomitant]
  5. ASPIRIN [Concomitant]
  6. OMEGA 3 FISH OIL [Concomitant]
  7. MULTI-VITAMIN [Concomitant]
  8. ASCORBIC ACID [Concomitant]
  9. VITAMIN D [Concomitant]
  10. VITAMIN A [Concomitant]
  11. ZINC [Concomitant]
  12. CRANBERRY [Concomitant]
  13. HYDROCHLOROTHIAZIDE [Concomitant]

REACTIONS (2)
  - CHEST PAIN [None]
  - PAIN IN EXTREMITY [None]
